FAERS Safety Report 13669415 (Version 1)
Quarter: 2017Q2

REPORT INFORMATION
  Report Type: Spontaneous
  Country: DE (occurrence: DE)
  Receive Date: 20170620
  Receipt Date: 20170620
  Transmission Date: 20170830
  Serious: Yes (Disabling, Other)
  Sender: FDA-Public Use
  Company Number: DE-TEVA-777885GER

PATIENT
  Age: 46 Year
  Sex: Female

DRUGS (18)
  1. METOPROLOL. [Concomitant]
     Active Substance: METOPROLOL
     Route: 048
     Dates: start: 20141016, end: 20160119
  2. RAMIPRIL. [Concomitant]
     Active Substance: RAMIPRIL
     Route: 048
     Dates: start: 20131219
  3. QUETIAPIN [Suspect]
     Active Substance: QUETIAPINE
     Route: 048
     Dates: start: 20100515, end: 20130110
  4. PIPAMPERON [Suspect]
     Active Substance: PIPAMPERONE HYDROCHLORIDE
     Route: 048
     Dates: start: 20140809, end: 20140904
  5. RAMIPRIL. [Concomitant]
     Active Substance: RAMIPRIL
     Route: 048
     Dates: start: 20121220, end: 20131218
  6. QUETIAPIN [Suspect]
     Active Substance: QUETIAPINE
     Route: 048
     Dates: start: 20130701, end: 20140521
  7. LEVOMEPROMAZIN [Suspect]
     Active Substance: LEVOMEPROMAZINE
     Route: 048
     Dates: start: 20140806, end: 20140925
  8. AMISULPRID [Suspect]
     Active Substance: AMISULPRIDE
     Route: 048
     Dates: start: 20140504, end: 20140612
  9. AMISULPRID [Suspect]
     Active Substance: AMISULPRIDE
     Route: 048
     Dates: start: 20140821, end: 20150514
  10. PIPAMPERON [Suspect]
     Active Substance: PIPAMPERONE HYDROCHLORIDE
     Route: 048
     Dates: start: 20140428, end: 20140808
  11. AMISULPRID [Suspect]
     Active Substance: AMISULPRIDE
     Route: 048
     Dates: start: 20140613, end: 20140820
  12. SERTRALINE [Suspect]
     Active Substance: SERTRALINE HYDROCHLORIDE
     Route: 048
     Dates: start: 20140610, end: 20140904
  13. QUETIAPIN [Suspect]
     Active Substance: QUETIAPINE
     Route: 048
     Dates: start: 20140522, end: 20140928
  14. METOPROLOL. [Concomitant]
     Active Substance: METOPROLOL
     Route: 048
     Dates: start: 20130905, end: 20141015
  15. QUETIAPIN [Suspect]
     Active Substance: QUETIAPINE
     Route: 048
     Dates: start: 20130111, end: 20130630
  16. PIPAMPERON [Suspect]
     Active Substance: PIPAMPERONE HYDROCHLORIDE
     Route: 048
     Dates: start: 20140905, end: 20141015
  17. LEVOMEPROMAZIN [Suspect]
     Active Substance: LEVOMEPROMAZINE
     Route: 048
     Dates: start: 20140503, end: 20140805
  18. METOPROLOL. [Concomitant]
     Active Substance: METOPROLOL
     Route: 048
     Dates: start: 20160120

REACTIONS (2)
  - Metabolic syndrome [Unknown]
  - Weight increased [Unknown]

NARRATIVE: CASE EVENT DATE: 20140701
